FAERS Safety Report 9257258 (Version 1)
Quarter: 2013Q1

REPORT INFORMATION
  Report Type: Spontaneous
  Country: US (occurrence: None)
  Receive Date: 20121212
  Receipt Date: 20121212
  Transmission Date: 20140127
  Serious: No
  Sender: FDA-Public Use
  Company Number: 1208USA008280

PATIENT
  Age: 50 Year
  Sex: Female

DRUGS (3)
  1. PEGINTRON [Suspect]
     Indication: HEPATITIS C
     Dates: start: 20120716
  2. REBETOL [Suspect]
     Indication: HEPATITIS C
     Dates: start: 20120716
  3. VICTRELIS [Suspect]
     Indication: HEPATITIS C
     Dates: start: 20120813

REACTIONS (14)
  - Malaise [None]
  - Vaginal discharge [None]
  - Vaginal odour [None]
  - Abdominal pain [None]
  - Bowel movement irregularity [None]
  - Pollakiuria [None]
  - Nausea [None]
  - Feeling cold [None]
  - Headache [None]
  - Arthralgia [None]
  - Pain [None]
  - Irritability [None]
  - Rash [None]
  - Asthenia [None]
